FAERS Safety Report 10028586 (Version 1)
Quarter: 2014Q1

REPORT INFORMATION
  Report Type: Spontaneous
  Country: US (occurrence: US)
  Receive Date: 20140321
  Receipt Date: 20140321
  Transmission Date: 20141002
  Serious: Yes (Hospitalization)
  Sender: FDA-Public Use
  Company Number: US-GLAXOSMITHKLINE-A1064880A

PATIENT
  Age: 81 Year
  Sex: Male

DRUGS (4)
  1. ADVAIR [Suspect]
     Indication: DYSPNOEA
     Dosage: 1PUFF TWICE PER DAY
     Route: 055
     Dates: start: 2001
  2. BLOOD PRESSURE MEDICATION [Concomitant]
     Indication: HYPERTENSION
  3. TRIAMTEREN + HYDROCHLOROTHIAZID [Concomitant]
  4. UNKNOWN MEDICATION [Concomitant]

REACTIONS (1)
  - Dyspnoea [Recovering/Resolving]
